FAERS Safety Report 23405371 (Version 1)
Quarter: 2024Q1

REPORT INFORMATION
  Report Type: Spontaneous
  Country: US (occurrence: None)
  Receive Date: 20240112
  Receipt Date: 20240112
  Transmission Date: 20240409
  Serious: Yes (Death, Life-Threatening, Hospitalization, Disabling)
  Sender: FDA-Public Use
  Company Number: None

PATIENT
  Age: 62 Year
  Sex: Female
  Weight: 110 kg

DRUGS (10)
  1. ENFORTUMAB VEDOTIN [Suspect]
     Active Substance: ENFORTUMAB VEDOTIN
     Indication: Transitional cell carcinoma
     Dosage: 125 MG DAYS 1, 8, 15 Q 4 WEEKS INTRAVENOUS DRIP?
     Route: 041
     Dates: start: 20231221, end: 20240104
  2. VINBLASTINE [Concomitant]
     Active Substance: VINBLASTINE
     Dates: start: 20230907, end: 20230907
  3. DOXORUBICIN [Concomitant]
     Active Substance: DOXORUBICIN
     Dates: start: 20230907, end: 20230907
  4. METHOTREXATE [Concomitant]
     Active Substance: METHOTREXATE
     Dates: start: 20230907, end: 20230907
  5. CISPLATIN [Concomitant]
     Active Substance: CISPLATIN
     Dates: start: 20230907, end: 20231123
  6. GEMCITABINE [Concomitant]
     Active Substance: GEMCITABINE
     Dates: start: 20230923, end: 20231124
  7. AUGMENTIN [Concomitant]
     Active Substance: AMOXICILLIN\CLAVULANATE POTASSIUM
     Dates: start: 20231012, end: 20240107
  8. CEFEPIME [Concomitant]
     Active Substance: CEFEPIME HYDROCHLORIDE
     Dates: start: 20231107, end: 20240110
  9. VANCOMYCIN [Concomitant]
     Active Substance: VANCOMYCIN
     Dates: start: 20231108, end: 20240111
  10. DULOXETINE [Concomitant]
     Active Substance: DULOXETINE
     Dates: start: 20231208, end: 20240111

REACTIONS (10)
  - Stevens-Johnson syndrome [None]
  - Rash morbilliform [None]
  - Drug eruption [None]
  - Drug reaction with eosinophilia and systemic symptoms [None]
  - Toxic epidermal necrolysis [None]
  - Pyrexia [None]
  - Hypotension [None]
  - Shock [None]
  - Multiple organ dysfunction syndrome [None]
  - Dialysis [None]

NARRATIVE: CASE EVENT DATE: 20240110
